FAERS Safety Report 7691877-5 (Version None)
Quarter: 2011Q3

REPORT INFORMATION
  Report Type: 
  Country: None (occurrence: None)
  Receive Date: 20110818
  Receipt Date: 20110816
  Transmission Date: 20111222
  Serious: Yes (Death, Other)
  Sender: FDA-Public Use
  Company Number: US-AMGEN-USASP2011040309

PATIENT
  Age: 80 Year
  Sex: Male
  Weight: 67.12 kg

DRUGS (1)
  1. NPLATE [Suspect]
     Indication: IDIOPATHIC THROMBOCYTOPENIC PURPURA
     Dosage: 240 A?G, QWK
     Route: 058
     Dates: start: 20100824, end: 20100915

REACTIONS (3)
  - SURGERY [None]
  - PROSTATE CANCER METASTATIC [None]
  - GENERAL PHYSICAL HEALTH DETERIORATION [None]
